FAERS Safety Report 7503937-X (Version None)
Quarter: 2011Q2

REPORT INFORMATION
  Report Type: 
  Country: None (occurrence: None)
  Receive Date: 20110524
  Receipt Date: 20110524
  Transmission Date: 20111010
  Serious: No
  Sender: FDA-Public Use
  Company Number: None

PATIENT
  Age: 68 Year
  Sex: Female
  Weight: 93.8946 kg

DRUGS (1)
  1. TRILAFON [Suspect]
     Indication: SCHIZOPHRENIA
     Dosage: 4MG TABLE 1 X A DAY
     Dates: start: 20110113, end: 20110201

REACTIONS (1)
  - DRUG INEFFECTIVE [None]
